FAERS Safety Report 16909520 (Version 1)
Quarter: 2019Q4

REPORT INFORMATION
  Report Type: Spontaneous
  Country: CN (occurrence: CN)
  Receive Date: 20191011
  Receipt Date: 20191011
  Transmission Date: 20200122
  Serious: Yes (Hospitalization, Other)
  Sender: FDA-Public Use
  Company Number: CN-ASTELLAS-2019US040090

PATIENT
  Age: 45 Year
  Sex: Male
  Weight: 56 kg

DRUGS (20)
  1. PREDNISONE. [Concomitant]
     Active Substance: PREDNISONE
     Indication: PROPHYLAXIS AGAINST TRANSPLANT REJECTION
     Route: 048
     Dates: start: 20180801, end: 20180808
  2. IMIPENEM AND CILASTATIN [Concomitant]
     Active Substance: CILASTATIN SODIUM\IMIPENEM
     Indication: ANTIBIOTIC PROPHYLAXIS
     Dosage: 0.5 G, EVERY 8 HOURS
     Route: 042
     Dates: start: 20180729, end: 20180803
  3. TACROLIMUS. [Suspect]
     Active Substance: TACROLIMUS
     Indication: PROPHYLAXIS AGAINST TRANSPLANT REJECTION
     Route: 048
     Dates: start: 20180729, end: 20180731
  4. PREDNISONE. [Concomitant]
     Active Substance: PREDNISONE
     Route: 048
     Dates: start: 20180808, end: 20180815
  5. AMPHOTERICIN B, LIPOSOME [Concomitant]
     Active Substance: AMPHOTERICIN B
     Indication: ANTIFUNGAL PROPHYLAXIS
     Route: 050
     Dates: start: 20180802, end: 20180905
  6. TACROLIMUS. [Suspect]
     Active Substance: TACROLIMUS
     Route: 048
     Dates: start: 20180811, end: 20180815
  7. TACROLIMUS. [Suspect]
     Active Substance: TACROLIMUS
     Route: 048
     Dates: start: 20180815, end: 20180817
  8. BASILIXIMAB [Concomitant]
     Active Substance: BASILIXIMAB
     Indication: LUNG TRANSPLANT
     Dosage: 20 MG, ONCE DAILY (BEFORE OPERATION AND ON THE 4TH DAY AFTER OPERATION)
     Route: 042
     Dates: start: 20180728, end: 20180731
  9. GANCICLOVIR. [Concomitant]
     Active Substance: GANCICLOVIR
     Indication: ANTIVIRAL PROPHYLAXIS
     Route: 048
     Dates: start: 20180825, end: 20180905
  10. TACROLIMUS. [Suspect]
     Active Substance: TACROLIMUS
     Dosage: 0.75 MG, EVERY 12 HOURS
     Route: 048
     Dates: start: 20180802, end: 20180806
  11. TACROLIMUS. [Suspect]
     Active Substance: TACROLIMUS
     Dosage: UNK UNK, TWICE DAILY (1 MG IN THE MORNING, 1.5 MG IN THE EVENING)
     Route: 048
     Dates: start: 20180825, end: 20180905
  12. METHYLPREDNISOLONE. [Concomitant]
     Active Substance: METHYLPREDNISOLONE
     Indication: PROPHYLAXIS AGAINST TRANSPLANT REJECTION
     Route: 042
     Dates: start: 20180730, end: 20180801
  13. PREDNISONE. [Concomitant]
     Active Substance: PREDNISONE
     Route: 048
     Dates: start: 20180815, end: 20180822
  14. METHYLPREDNISOLONE. [Concomitant]
     Active Substance: METHYLPREDNISOLONE
     Indication: IMMUNE ENHANCEMENT THERAPY
     Route: 042
     Dates: start: 20180730, end: 20180730
  15. MYCOPHENOLATE [Concomitant]
     Active Substance: MYCOPHENOLIC ACID
     Indication: PROPHYLAXIS AGAINST TRANSPLANT REJECTION
     Dosage: 0.18 G, EVERY 12 HOURS
     Route: 048
     Dates: start: 20180803, end: 20180905
  16. PREDNISONE. [Concomitant]
     Active Substance: PREDNISONE
     Route: 048
     Dates: start: 20180822, end: 20180905
  17. TACROLIMUS. [Suspect]
     Active Substance: TACROLIMUS
     Dosage: UNK UNK, TWICE DAILY (1 MG IN THE MORNING, 1.5 MG IN THE EVENING)
     Route: 048
     Dates: start: 20180806, end: 20180811
  18. TACROLIMUS. [Suspect]
     Active Substance: TACROLIMUS
     Dosage: UNK UNK, TWICE DAILY (2 MG IN THE MORNING, AND 2.5 MG IN THE EVENING)
     Route: 048
     Dates: start: 20180817, end: 20180825
  19. CASPOFUNGIN [Concomitant]
     Active Substance: CASPOFUNGIN
     Indication: THERAPEUTIC PROCEDURE
     Dosage: UNK UNK, ONCE DAILY (FIRST DOSE OF 70 MG, 50 MG)
     Route: 042
     Dates: start: 20180729, end: 20180820
  20. GANCICLOVIR. [Concomitant]
     Active Substance: GANCICLOVIR
     Indication: ANTIVIRAL PROPHYLAXIS
     Dosage: 0.25 MG, ONCE DAILY
     Route: 042
     Dates: start: 20180729, end: 20180825

REACTIONS (3)
  - Immunosuppressant drug level increased [Recovered/Resolved]
  - Klebsiella infection [Recovered/Resolved]
  - Diarrhoea [Recovered/Resolved]

NARRATIVE: CASE EVENT DATE: 20180731
